FAERS Safety Report 11775202 (Version 1)
Quarter: 2015Q4

REPORT INFORMATION
  Report Type: Other
  Country: IT (occurrence: IT)
  Receive Date: 20151124
  Receipt Date: 20151124
  Transmission Date: 20160304
  Serious: Yes (Hospitalization)
  Sender: FDA-Public Use
  Company Number: IT-MYLANLABS-2015M1040633

PATIENT

DRUGS (2)
  1. LEPONEX [Suspect]
     Active Substance: CLOZAPINE
     Indication: PRODUCT USED FOR UNKNOWN INDICATION
     Dosage: 12 DF, TOTAL
     Route: 048
     Dates: start: 20151030, end: 20151030
  2. LORAZEPAM. [Suspect]
     Active Substance: LORAZEPAM
     Indication: PRODUCT USED FOR UNKNOWN INDICATION
     Dosage: 3 DF, TOTAL
     Route: 048
     Dates: start: 20151030, end: 20151030

REACTIONS (6)
  - Drug abuse [Unknown]
  - Intentional overdose [Unknown]
  - Thoracic vertebral fracture [Unknown]
  - Urinary incontinence [Unknown]
  - Epilepsy [Unknown]
  - Spinal cord injury [Unknown]

NARRATIVE: CASE EVENT DATE: 20151030
